FAERS Safety Report 16734771 (Version 2)
Quarter: 2019Q3

REPORT INFORMATION
  Report Type: Report from Study
  Country: US (occurrence: US)
  Receive Date: 20190823
  Receipt Date: 20190930
  Transmission Date: 20191005
  Serious: Yes (Other)
  Sender: FDA-Public Use
  Company Number: US-MYLANLABS-2019M1077791

PATIENT
  Sex: Female
  Weight: 59 kg

DRUGS (3)
  1. GRALISE [Concomitant]
     Active Substance: GABAPENTIN
     Dosage: UNK
  2. GLATIRAMER ACETATE INJECTION [Suspect]
     Active Substance: GLATIRAMER ACETATE
     Indication: SECONDARY PROGRESSIVE MULTIPLE SCLEROSIS
     Dosage: 40 MILLIGRAM, 3XW
     Route: 058
  3. TIZANIDINE. [Concomitant]
     Active Substance: TIZANIDINE
     Dosage: UNK

REACTIONS (3)
  - Product use in unapproved indication [Not Recovered/Not Resolved]
  - Neuralgia [Unknown]
  - Therapeutic product effect decreased [Not Recovered/Not Resolved]
